FAERS Safety Report 14167671 (Version 2)
Quarter: 2017Q4

REPORT INFORMATION
  Report Type: Spontaneous
  Country: JP (occurrence: JP)
  Receive Date: 20171107
  Receipt Date: 20171201
  Transmission Date: 20180321
  Serious: Yes (Hospitalization)
  Sender: FDA-Public Use
  Company Number: JP-DSJP-DSJ-2017-145538

PATIENT

DRUGS (5)
  1. LIXIANA TABLETS [Suspect]
     Active Substance: EDOXABAN TOSYLATE
     Indication: THROMBOSIS
     Dosage: 60 MG, QD
     Route: 048
  2. UROKINASE [Concomitant]
     Active Substance: UROKINASE
     Indication: THROMBOSIS
     Dosage: 240000 IU/DAY
     Route: 065
  3. HEPARIN [Suspect]
     Active Substance: HEPARIN SODIUM
     Indication: THROMBOSIS
     Dosage: 10000 IU/DAY
     Route: 065
  4. HEPARIN [Suspect]
     Active Substance: HEPARIN SODIUM
     Dosage: UNK
     Route: 065
  5. UROKINASE [Concomitant]
     Active Substance: UROKINASE
     Dosage: UNK
     Route: 065

REACTIONS (2)
  - Peripheral swelling [Recovering/Resolving]
  - Heparin-induced thrombocytopenia [Unknown]
